FAERS Safety Report 13626716 (Version 2)
Quarter: 2017Q3

REPORT INFORMATION
  Report Type: Spontaneous
  Country: EG (occurrence: EG)
  Receive Date: 20170608
  Receipt Date: 20170824
  Transmission Date: 20171127
  Serious: Yes (Hospitalization)
  Sender: FDA-Public Use
  Company Number: EG-ASTRAZENECA-2017SE58281

PATIENT
  Age: 57 Year
  Sex: Female
  Weight: 103 kg

DRUGS (4)
  1. FORXIGA [Suspect]
     Active Substance: DAPAGLIFLOZIN
     Indication: BLOOD GLUCOSE ABNORMAL
     Route: 048
     Dates: start: 20170524, end: 20170728
  2. LANTUS [Suspect]
     Active Substance: INSULIN GLARGINE
     Dosage: 20.0IU UNKNOWN
     Route: 065
  3. JANUMET [Suspect]
     Active Substance: METFORMIN HYDROCHLORIDE\SITAGLIPTIN PHOSPHATE
     Dosage: 50/1000MG TWO TIMES A DAY
     Route: 065
  4. CONCOR [Concomitant]
     Active Substance: BISOPROLOL FUMARATE

REACTIONS (1)
  - Diabetic ketoacidosis [Recovered/Resolved]
